FAERS Safety Report 23596138 (Version 3)
Quarter: 2024Q2

REPORT INFORMATION
  Report Type: Spontaneous
  Country: US (occurrence: US)
  Receive Date: 20240305
  Receipt Date: 20240430
  Transmission Date: 20240715
  Serious: Yes (Hospitalization, Other)
  Sender: FDA-Public Use
  Company Number: US-PFIZER INC-PV202300125541

PATIENT
  Age: 65 Year
  Sex: Female
  Weight: 65.76 kg

DRUGS (1)
  1. IBRANCE [Suspect]
     Active Substance: PALBOCICLIB
     Indication: Breast cancer female
     Dosage: 125 MG TABLET
     Route: 048

REACTIONS (3)
  - Clostridium difficile infection [Not Recovered/Not Resolved]
  - Neoplasm progression [Unknown]
  - Pyrexia [Unknown]
